FAERS Safety Report 7739589-3 (Version None)
Quarter: 2011Q3

REPORT INFORMATION
  Report Type: 
  Country: None (occurrence: None)
  Receive Date: 20110909
  Receipt Date: 20101119
  Transmission Date: 20111222
  Serious: No
  Sender: FDA-Public Use
  Company Number: US-BAYER-201037615NA

PATIENT
  Age: 56 Year
  Sex: Female
  Weight: 60.771 kg

DRUGS (1)
  1. MAGNEVIST [Suspect]
     Indication: ANGIOGRAM
     Dosage: 32ML,LINE FLUSHES;POWER INJECTOR AT THE RATE 2CC/SEC
     Route: 042
     Dates: start: 20101013, end: 20101013

REACTIONS (3)
  - DYSPNOEA [None]
  - EYE MOVEMENT DISORDER [None]
  - EYE PRURITUS [None]
